FAERS Safety Report 7572184-8 (Version None)
Quarter: 2011Q2

REPORT INFORMATION
  Report Type: 
  Country: None (occurrence: None)
  Receive Date: 20110624
  Receipt Date: 20110610
  Transmission Date: 20111010
  Serious: Yes (Other)
  Sender: FDA-Public Use
  Company Number: PHHY2011DE51881

PATIENT
  Sex: Male

DRUGS (7)
  1. AMLODIPINE [Concomitant]
  2. ISOPROLOL [Concomitant]
  3. MULTAQ [Suspect]
     Dosage: 1 DF, DAILY
  4. ALPROSTADIL [Concomitant]
  5. VALSARTAN [Suspect]
     Dosage: 80 MG, UNK
  6. HYDROCHLOROTHIAZIDE [Suspect]
     Dosage: 1 DF (VALSARTAN 160 MG/ HYDROCHLOROTHIAZIDE 25 MG)
  7. RIFUN [Concomitant]

REACTIONS (3)
  - TRANSIENT ISCHAEMIC ATTACK [None]
  - ATRIAL FIBRILLATION [None]
  - FEELING ABNORMAL [None]
